FAERS Safety Report 9782562 (Version 2)
Quarter: 2014Q1

REPORT INFORMATION
  Report Type: Report from Study
  Country: US (occurrence: US)
  Receive Date: 20131226
  Receipt Date: 20140124
  Transmission Date: 20141002
  Serious: Yes (Other)
  Sender: FDA-Public Use
  Company Number: PHEH2013US026243

PATIENT
  Sex: Male

DRUGS (1)
  1. GLEEVEC [Suspect]
     Dosage: 400 MG, BID
     Route: 048

REACTIONS (3)
  - Lung disorder [Unknown]
  - Gastrointestinal disorder [Unknown]
  - Therapeutic response decreased [Unknown]
